FAERS Safety Report 18823545 (Version 2)
Quarter: 2021Q1

REPORT INFORMATION
  Report Type: Spontaneous
  Country: ZA (occurrence: ZA)
  Receive Date: 20210202
  Receipt Date: 20210204
  Transmission Date: 20210419
  Serious: Yes (Death)
  Sender: FDA-Public Use
  Company Number: ZA-FRESENIUS KABI-FK202101026

PATIENT
  Age: 11 Month
  Sex: Female

DRUGS (3)
  1. AMIKACIN (MANUFACTURER UNKNOWN) [Suspect]
     Active Substance: AMIKACIN
     Indication: PNEUMONIA
     Dosage: UNK
     Route: 065
  2. PIPERACILLIN SODIUM/TAZOBACTAM SODIUM [Suspect]
     Active Substance: PIPERACILLIN SODIUM\TAZOBACTAM SODIUM
     Indication: PNEUMONIA
  3. CLOXACILLIN [Suspect]
     Active Substance: CLOXACILLIN
     Indication: PNEUMONIA

REACTIONS (3)
  - Overdose [Fatal]
  - Acute kidney injury [Fatal]
  - Inappropriate schedule of product administration [Fatal]
